FAERS Safety Report 13936768 (Version 1)
Quarter: 2017Q3

REPORT INFORMATION
  Report Type: Spontaneous
  Country: US (occurrence: US)
  Receive Date: 20170905
  Receipt Date: 20170905
  Transmission Date: 20171127
  Serious: No
  Sender: FDA-Public Use
  Company Number: US-PFIZER INC-2017381327

PATIENT
  Age: 66 Year
  Sex: Female
  Weight: 50.79 kg

DRUGS (34)
  1. GLUCOSAMINE COMPLEX [Concomitant]
     Active Substance: GLUCOSAMINE\GLUCOSAMINE SULFATE
     Indication: OSTEOARTHRITIS
     Dosage: 2 DF, DAILY
     Route: 048
     Dates: start: 20160610
  2. LOVENOX [Concomitant]
     Active Substance: ENOXAPARIN SODIUM
     Dosage: 30 MG, DAILY
     Route: 058
     Dates: start: 20170804, end: 20170830
  3. PROZAC [Concomitant]
     Active Substance: FLUOXETINE HYDROCHLORIDE
     Dosage: 20 MG, DAILY
     Route: 048
     Dates: start: 20160610
  4. ROBITUSSIN AC [Concomitant]
     Active Substance: CODEINE PHOSPHATE\GUAIFENESIN
     Indication: COUGH
     Dosage: 5 ML, AS NEEDED [CODEINE PHOSPHATE - 10MG/5ML]/[GUAIFENESIN - 100MG/5ML]
     Route: 048
     Dates: start: 20170301
  5. ORETIC [Concomitant]
     Active Substance: HYDROCHLOROTHIAZIDE
     Dosage: 12.5 MG, DAILY
     Route: 048
     Dates: start: 20170608, end: 20170830
  6. EMLA [Concomitant]
     Active Substance: LIDOCAINE\PRILOCAINE
     Indication: LOCAL ANAESTHESIA
     Dosage: UNK , [LIDOCAINE: 2.5 %]/[PRILOCAINE: 2.5 %]
     Dates: start: 20160610
  7. ROXICODONE INTENSO [Concomitant]
     Indication: PAIN
     Dosage: UNK, AS NEEDED [TAKE 0.125-0.25 ML]
     Route: 048
     Dates: start: 20170425
  8. ROXICODONE INTENSO [Concomitant]
     Indication: DYSPNOEA
  9. ATIVAN [Concomitant]
     Active Substance: LORAZEPAM
     Indication: ANXIETY
     Dosage: 0.5 MG, AS NEEDED, (1 TAB BY MOUTH EVERY 6 HOURS)
     Route: 048
     Dates: start: 20170501
  10. DEEP SEA, OCEAN [Concomitant]
     Indication: NASAL CONGESTION
     Dosage: 2 DF, AS NEEDED
     Route: 045
  11. NIVOLUMAB [Concomitant]
     Active Substance: NIVOLUMAB
     Dosage: UNK
     Dates: end: 201704
  12. ALBUTEROL SULFATE. [Concomitant]
     Active Substance: ALBUTEROL SULFATE
     Indication: WHEEZING
     Dosage: UNK, AS NEEDED [INHALE 1-2 PUFFS EVERY 4 HOURS AS NEEDED]
     Route: 055
     Dates: start: 20161101
  13. CARBOPLATIN. [Concomitant]
     Active Substance: CARBOPLATIN
     Dosage: UNK, WEEKLY
  14. TENORMIN [Concomitant]
     Active Substance: ATENOLOL
     Dosage: 50 MG, DAILY [TAKE 2 TABS]
     Route: 048
     Dates: start: 20170601, end: 20170830
  15. CABOZANTINIB S-MALATE [Concomitant]
     Active Substance: CABOZANTINIB S-MALATE
     Dosage: 40 MG, DAILY
     Route: 048
     Dates: start: 20170417
  16. CABOZANTINIB S-MALATE [Concomitant]
     Active Substance: CABOZANTINIB S-MALATE
     Dosage: 40 MG, DAILY
     Dates: start: 20170423
  17. TAGAMET [Concomitant]
     Active Substance: CIMETIDINE
     Dosage: 300 MG, 1X/DAY [DAILY AT BEDTIME]
     Route: 048
  18. ZOFRAN [Concomitant]
     Active Substance: ONDANSETRON HYDROCHLORIDE
     Indication: NAUSEA
     Dosage: 8 MG, AS NEEDED, (TAKE 1 TAB BY MOUTH EVERY 8 HOURS )
     Route: 048
     Dates: start: 20161208, end: 20170830
  19. COMPAZINE [Concomitant]
     Active Substance: PROCHLORPERAZINE MALEATE
     Indication: VOMITING
  20. CRANBERRY CONCENTRATE [Concomitant]
     Active Substance: CRANBERRY CONCENTRATE
     Indication: NUTRITIONAL SUPPLEMENTATION
     Dosage: 1 DF, DAILY [140-100-3MG- MG]
     Route: 048
     Dates: start: 20160610
  21. BENADRYL [Concomitant]
     Active Substance: DIPHENHYDRAMINE HYDROCHLORIDE
     Indication: PRURITUS
     Dosage: 25 MG, AS NEEDED [EVERY 6 HOURS AS NEEDED]
     Route: 048
     Dates: start: 20160610
  22. ZOFRAN [Concomitant]
     Active Substance: ONDANSETRON HYDROCHLORIDE
     Indication: VOMITING
  23. ROXICODONE INTENSO [Concomitant]
     Indication: COUGH
  24. TAXOL [Concomitant]
     Active Substance: PACLITAXEL
     Dosage: UNK
  25. ACETAMINOPHEN. [Concomitant]
     Active Substance: ACETAMINOPHEN
     Indication: PAIN
     Dosage: 650 MG, AS NEEDED [EVERY 6 HOURS AS NEEDED]
     Route: 048
     Dates: start: 20160610
  26. EPIPEN [Concomitant]
     Active Substance: EPINEPHRINE
     Indication: HYPERSENSITIVITY
     Dosage: 0.3 ML, AS NEEDED
     Route: 030
     Dates: start: 20160610
  27. MELATONIN [Concomitant]
     Active Substance: MELATONIN
     Dosage: 9 MG, 1X/DAY
     Route: 048
  28. BENADRYL [Concomitant]
     Active Substance: DIPHENHYDRAMINE HYDROCHLORIDE
     Dosage: 50 MG, 1X/DAY [9:30 AM THE DAY ]
     Dates: start: 20170608
  29. ALIMTA [Concomitant]
     Active Substance: PEMETREXED DISODIUM
     Dosage: UNK
     Dates: end: 201701
  30. IBRANCE [Suspect]
     Active Substance: PALBOCICLIB
     Indication: LUNG NEOPLASM MALIGNANT
     Dosage: 75 MG, CYCLIC [21 DAYS, THEN 7 DAYS OFF]
     Route: 048
  31. ZITHROMAX [Concomitant]
     Active Substance: AZITHROMYCIN DIHYDRATE
     Dosage: UNK [TAKE 2 TABLETS TODAY AND ONE TABLET DAILY AFTERWARDS FOR 4 DAYS]
     Dates: start: 20170830
  32. CYTOMEL [Concomitant]
     Active Substance: LIOTHYRONINE SODIUM
     Indication: THYROID DISORDER
     Dosage: 25 UG, DAILY
     Route: 048
     Dates: start: 20170621
  33. DELTASONE [Concomitant]
     Active Substance: PREDNISONE
     Dosage: 50 MG, UNK, (1 TABLET THE DAY BEFORE CT, 1 TABLET AT 3:30 AM THE DAY CT, 9:30 AM THE DAY OF THE CT)
     Dates: start: 20170608
  34. COMPAZINE [Concomitant]
     Active Substance: PROCHLORPERAZINE MALEATE
     Indication: NAUSEA
     Dosage: 10 MG, AS NEEDED, (1 TAB BY MOUTH EVERY 6 HOURS )
     Route: 048
     Dates: start: 20160610

REACTIONS (2)
  - Neoplasm progression [Unknown]
  - Product use in unapproved indication [Unknown]

NARRATIVE: CASE EVENT DATE: 201604
